FAERS Safety Report 4824801-0 (Version None)
Quarter: 2005Q4

REPORT INFORMATION
  Report Type: 
  Country: None (occurrence: None)
  Receive Date: 20051110
  Receipt Date: 20051103
  Transmission Date: 20060501
  Serious: Yes (Hospitalization)
  Sender: FDA-Public Use
  Company Number: PHRM2005FR02895

PATIENT
  Age: 9 Month
  Sex: Male

DRUGS (4)
  1. TRILEPTAL [Suspect]
     Indication: EPILEPSY
     Dosage: 120 MG, TID
     Route: 048
     Dates: start: 20050530, end: 20050916
  2. TRILEPTAL [Suspect]
     Dosage: 150 MG, TID
     Route: 048
     Dates: start: 20050917
  3. SABRIL [Suspect]
     Dosage: 300 MG, BID
     Route: 048
     Dates: start: 20050420, end: 20050530
  4. SABRIL [Suspect]
     Dosage: 400 MG, BID
     Route: 048
     Dates: start: 20050531

REACTIONS (6)
  - ARTHRALGIA [None]
  - ARTHROGRAM [None]
  - EPIPHYSIOLYSIS [None]
  - FRACTURE REDUCTION [None]
  - HIP SURGERY [None]
  - TRACTION [None]
